FAERS Safety Report 18454315 (Version 1)
Quarter: 2020Q4

REPORT INFORMATION
  Report Type: Spontaneous
  Country: US (occurrence: US)
  Receive Date: 20201102
  Receipt Date: 20201102
  Transmission Date: 20210114
  Serious: Yes (Death)
  Sender: FDA-Public Use
  Company Number: US-CELGENEUS-USA-20201008288

PATIENT
  Age: 83 Year
  Sex: Female

DRUGS (3)
  1. THALOMID [Suspect]
     Active Substance: THALIDOMIDE
     Indication: MYELOFIBROSIS
     Dosage: 50 MILLIGRAM
     Route: 048
     Dates: start: 20200930, end: 20201027
  2. THALOMID [Suspect]
     Active Substance: THALIDOMIDE
     Indication: MYELOID LEUKAEMIA
  3. THALOMID [Suspect]
     Active Substance: THALIDOMIDE
     Indication: OFF LABEL USE

REACTIONS (1)
  - Death [Fatal]

NARRATIVE: CASE EVENT DATE: 20201027
